FAERS Safety Report 5198282-4 (Version None)
Quarter: 2007Q1

REPORT INFORMATION
  Report Type: 
  Country: None (occurrence: None)
  Receive Date: 20070104
  Receipt Date: 20061221
  Transmission Date: 20070707
  Serious: Yes (Other)
  Sender: FDA-Public Use
  Company Number: GSK1212

PATIENT
  Age: 61 Year
  Sex: Male

DRUGS (2)
  1. ACETAMINOPHEN [Suspect]
     Indication: DRUG USE FOR UNKNOWN INDICATION
     Route: 048
  2. NAC DIAGNOSTIC REAGENT [Suspect]
     Indication: OVERDOSE
     Route: 065

REACTIONS (3)
  - FLUSHING [None]
  - INTENTIONAL OVERDOSE [None]
  - PRURITUS GENERALISED [None]
